FAERS Safety Report 22644215 (Version 1)
Quarter: 2023Q2

REPORT INFORMATION
  Report Type: Report from Study
  Country: US (occurrence: US)
  Receive Date: 20230627
  Receipt Date: 20230627
  Transmission Date: 20230722
  Serious: Yes (Other)
  Sender: FDA-Public Use
  Company Number: US-UCBSA-2023031520

PATIENT
  Sex: Female
  Weight: 82.5 kg

DRUGS (6)
  1. LACOSAMIDE [Suspect]
     Active Substance: LACOSAMIDE
     Indication: Seizure
     Dosage: 200 MILLIGRAM, 2X/DAY (BID)
     Route: 048
     Dates: start: 20220809, end: 20230310
  2. LACOSAMIDE [Suspect]
     Active Substance: LACOSAMIDE
     Indication: Idiopathic partial epilepsy
  3. KEPPRA [Suspect]
     Active Substance: LEVETIRACETAM
     Indication: Idiopathic partial epilepsy
     Dosage: 500 MILLIGRAM, 2X/DAY (BID)
     Route: 048
  4. KEPPRA [Suspect]
     Active Substance: LEVETIRACETAM
     Dosage: 1750 MILLIGRAM, 2X/DAY (BID)
     Route: 048
     Dates: start: 20221114
  5. ERGOCALCIFEROL [Concomitant]
     Active Substance: ERGOCALCIFEROL
     Indication: Product used for unknown indication
     Dosage: 1250 MICROGRAM, 1 CAPSULE ONCE A WEEK
     Route: 048
     Dates: start: 20221114
  6. FLONASE [Concomitant]
     Active Substance: FLUTICASONE PROPIONATE
     Indication: Product used for unknown indication
     Dosage: 50 MICROGRAM/ACTUATION
     Route: 045
     Dates: start: 20220122

REACTIONS (4)
  - Seizure [Unknown]
  - Loss of consciousness [Unknown]
  - Tongue biting [Unknown]
  - Somnolence [Unknown]
